FAERS Safety Report 7565911-7 (Version None)
Quarter: 2011Q2

REPORT INFORMATION
  Report Type: 
  Country: None (occurrence: None)
  Receive Date: 20110623
  Receipt Date: 20110610
  Transmission Date: 20111010
  Serious: Yes (Other)
  Sender: FDA-Public Use
  Company Number: US-ELI_LILLY_AND_COMPANY-US201106004627

PATIENT
  Age: 55 Year
  Sex: Male

DRUGS (1)
  1. EFFIENT [Suspect]
     Indication: STENT PLACEMENT
     Dosage: 10 MG, UNKNOWN

REACTIONS (2)
  - COLON CANCER STAGE I [None]
  - HAEMOGLOBIN ABNORMAL [None]
